FAERS Safety Report 15549861 (Version 1)
Quarter: 2018Q4

REPORT INFORMATION
  Report Type: Spontaneous
  Country: US (occurrence: US)
  Receive Date: 20181025
  Receipt Date: 20181025
  Transmission Date: 20190205
  Serious: Yes (Other)
  Sender: FDA-Public Use
  Company Number: PHHY2018US132326

PATIENT
  Age: 71 Year
  Sex: Female

DRUGS (1)
  1. TRIAMCINOLONE ACETONIDE. [Suspect]
     Active Substance: TRIAMCINOLONE ACETONIDE
     Indication: SCLERITIS
     Route: 031

REACTIONS (4)
  - Product use in unapproved indication [Unknown]
  - Retinal detachment [Recovering/Resolving]
  - Wrong technique in product usage process [Unknown]
  - Retinal tear [Recovering/Resolving]
